FAERS Safety Report 19973560 (Version 1)
Quarter: 2021Q4

REPORT INFORMATION
  Report Type: Spontaneous
  Country: US (occurrence: US)
  Receive Date: 20211020
  Receipt Date: 20211020
  Transmission Date: 20220303
  Serious: Yes (Other)
  Sender: FDA-Public Use
  Company Number: US-JNJFOC-20211023668

PATIENT
  Age: 35 Year
  Sex: Female

DRUGS (2)
  1. SPRAVATO [Suspect]
     Active Substance: ESKETAMINE
     Indication: Depression
     Dosage: ^56 MG, TOTAL 2 DOSES^
     Dates: start: 20211004, end: 20211006
  2. SPRAVATO [Suspect]
     Active Substance: ESKETAMINE
     Dates: start: 20211011, end: 20211011

REACTIONS (1)
  - Hypotension [Recovered/Resolved]

NARRATIVE: CASE EVENT DATE: 20211011
